FAERS Safety Report 4331128-2 (Version None)
Quarter: 2004Q1

REPORT INFORMATION
  Report Type: 
  Country: None (occurrence: None)
  Receive Date: 20040331
  Receipt Date: 20040324
  Transmission Date: 20041129
  Serious: Yes (Death)
  Sender: FDA-Public Use
  Company Number: US-SHR-03-017538

PATIENT
  Age: 48 Year
  Sex: Female

DRUGS (2)
  1. BETASERON [Suspect]
     Indication: MULTIPLE SCLEROSIS
     Dosage: SUBCUTANEOUS
     Route: 058
     Dates: start: 20011201
  2. NEURONTIN [Concomitant]

REACTIONS (1)
  - MULTIPLE DRUG OVERDOSE [None]
